FAERS Safety Report 8266239-2 (Version None)
Quarter: 2012Q2

REPORT INFORMATION
  Report Type: 
  Country: None (occurrence: None)
  Receive Date: 20120406
  Receipt Date: 20120405
  Transmission Date: 20120825
  Serious: Yes (Life-Threatening, Hospitalization, Other)
  Sender: FDA-Public Use
  Company Number: KR-PFIZER INC-2011314790

PATIENT
  Age: 54 Year
  Sex: Male

DRUGS (1)
  1. LIDOCAINE HYDROCHLORIDE [Suspect]
     Indication: ANAESTHESIA
     Dosage: UNK

REACTIONS (3)
  - BRONCHOSPASM [None]
  - CARDIO-RESPIRATORY ARREST [None]
  - ANAPHYLACTIC SHOCK [None]
